FAERS Safety Report 4773766-9 (Version None)
Quarter: 2005Q3

REPORT INFORMATION
  Report Type: 
  Country: None (occurrence: None)
  Receive Date: 20050920
  Receipt Date: 20050909
  Transmission Date: 20060218
  Serious: Yes (Other)
  Sender: FDA-Public Use
  Company Number: CA-MERCK-0509USA01108

PATIENT
  Age: 26 Year
  Sex: Male
  Weight: 183 kg

DRUGS (6)
  1. SINGULAIR [Suspect]
     Route: 048
  2. DEMEROL [Concomitant]
     Route: 048
  3. MOTILIUM [Concomitant]
     Route: 048
  4. NAPROSYN [Concomitant]
     Route: 065
  5. PRAVACHOL [Concomitant]
     Route: 048
  6. RANITIDINE [Concomitant]
     Route: 048

REACTIONS (7)
  - BLOOD GLUCOSE INCREASED [None]
  - BLOOD PRESSURE INCREASED [None]
  - CHILLS [None]
  - HEADACHE [None]
  - STOMACH DISCOMFORT [None]
  - TACHYCARDIA [None]
  - VOMITING [None]
